FAERS Safety Report 8407226 (Version 5)
Quarter: 2013Q1

REPORT INFORMATION
  Report Type: Report from Study
  Country: JP (occurrence: JP)
  Receive Date: 20120215
  Receipt Date: 20130207
  Transmission Date: 20140127
  Serious: Yes (Hospitalization)
  Sender: FDA-Public Use
  Company Number: JP-UCBSA-051141

PATIENT
  Age: 43 Year
  Sex: Female
  Weight: 48.5 kg

DRUGS (33)
  1. E KEPPRA [Suspect]
     Indication: COMPLEX PARTIAL SEIZURES
     Route: 048
     Dates: start: 20111005, end: 20111227
  2. E KEPPRA [Suspect]
     Indication: SIMPLE PARTIAL SEIZURES
     Route: 048
     Dates: start: 20111005, end: 20111227
  3. E KEPPRA [Suspect]
     Indication: GRAND MAL CONVULSION
     Route: 048
     Dates: start: 20111005, end: 20111227
  4. LEXIN [Concomitant]
     Indication: COMPLEX PARTIAL SEIZURES
     Dosage: DAILY DOSE:450MG
     Route: 048
     Dates: start: 20110331, end: 20120124
  5. LEXIN [Concomitant]
     Indication: PARTIAL SEIZURES WITH SECONDARY GENERALISATION
     Dosage: DAILY DOSE:450MG
     Route: 048
     Dates: start: 20110331, end: 20120124
  6. LEXIN [Concomitant]
     Indication: SIMPLE PARTIAL SEIZURES
     Dosage: DAILY DOSE:450MG
     Route: 048
     Dates: start: 20110331, end: 20120124
  7. LEXIN [Concomitant]
     Indication: COMPLEX PARTIAL SEIZURES
     Dosage: DAILY DOSE: 300 MG
     Route: 048
     Dates: start: 20120125
  8. LEXIN [Concomitant]
     Indication: PARTIAL SEIZURES WITH SECONDARY GENERALISATION
     Dosage: DAILY DOSE: 300 MG
     Route: 048
     Dates: start: 20120125
  9. LEXIN [Concomitant]
     Indication: SIMPLE PARTIAL SEIZURES
     Dosage: DAILY DOSE: 300 MG
     Route: 048
     Dates: start: 20120125
  10. DEPAKENE-R [Concomitant]
     Indication: SIMPLE PARTIAL SEIZURES
     Dosage: DAILY DOSE:1200 MG
     Route: 048
     Dates: end: 20110718
  11. DEPAKENE-R [Concomitant]
     Indication: COMPLEX PARTIAL SEIZURES
     Dosage: DAILY DOSE:1200 MG
     Route: 048
     Dates: end: 20110718
  12. DEPAKENE-R [Concomitant]
     Indication: PARTIAL SEIZURES WITH SECONDARY GENERALISATION
     Dosage: DAILY DOSE:1200 MG
     Route: 048
     Dates: end: 20110718
  13. DEPAKENE-R [Concomitant]
     Indication: SIMPLE PARTIAL SEIZURES
     Dosage: DAILY DOSE:1000 MG
     Route: 048
     Dates: start: 2011, end: 20110911
  14. DEPAKENE-R [Concomitant]
     Indication: COMPLEX PARTIAL SEIZURES
     Dosage: DAILY DOSE:1000 MG
     Route: 048
     Dates: start: 2011, end: 20110911
  15. DEPAKENE-R [Concomitant]
     Indication: PARTIAL SEIZURES WITH SECONDARY GENERALISATION
     Dosage: DAILY DOSE:1000 MG
     Route: 048
     Dates: start: 2011, end: 20110911
  16. DEPAKENE-R [Concomitant]
     Indication: SIMPLE PARTIAL SEIZURES
     Dosage: DAILY DOSE:800 MG
     Route: 048
     Dates: start: 2011, end: 20111004
  17. DEPAKENE-R [Concomitant]
     Indication: COMPLEX PARTIAL SEIZURES
     Dosage: DAILY DOSE:800 MG
     Route: 048
     Dates: start: 2011, end: 20111004
  18. DEPAKENE-R [Concomitant]
     Indication: PARTIAL SEIZURES WITH SECONDARY GENERALISATION
     Dosage: DAILY DOSE:800 MG
     Route: 048
     Dates: start: 2011, end: 20111004
  19. DEPAKENE-R [Concomitant]
     Indication: SIMPLE PARTIAL SEIZURES
     Dosage: DAILY DOSE 600 MG
     Route: 048
     Dates: start: 20111005, end: 20111030
  20. DEPAKENE-R [Concomitant]
     Indication: COMPLEX PARTIAL SEIZURES
     Dosage: DAILY DOSE 600 MG
     Route: 048
     Dates: start: 20111005, end: 20111030
  21. DEPAKENE-R [Concomitant]
     Indication: PARTIAL SEIZURES WITH SECONDARY GENERALISATION
     Dosage: DAILY DOSE 600 MG
     Route: 048
     Dates: start: 20111005, end: 20111030
  22. DEPAKENE-R [Concomitant]
     Indication: SIMPLE PARTIAL SEIZURES
     Dosage: DAILY DOSE: 500 MG
     Route: 048
     Dates: start: 20111031, end: 20111127
  23. DEPAKENE-R [Concomitant]
     Indication: COMPLEX PARTIAL SEIZURES
     Dosage: DAILY DOSE: 500 MG
     Route: 048
     Dates: start: 20111031, end: 20111127
  24. DEPAKENE-R [Concomitant]
     Indication: PARTIAL SEIZURES WITH SECONDARY GENERALISATION
     Dosage: DAILY DOSE: 500 MG
     Route: 048
     Dates: start: 20111031, end: 20111127
  25. DEPAKENE-R [Concomitant]
     Indication: SIMPLE PARTIAL SEIZURES
     Dosage: DAILY DOSE :300 MG
     Route: 048
     Dates: start: 20111128
  26. DEPAKENE-R [Concomitant]
     Indication: COMPLEX PARTIAL SEIZURES
     Dosage: DAILY DOSE :300 MG
     Route: 048
     Dates: start: 20111128
  27. DEPAKENE-R [Concomitant]
     Indication: PARTIAL SEIZURES WITH SECONDARY GENERALISATION
     Dosage: DAILY DOSE :300 MG
     Route: 048
     Dates: start: 20111128
  28. GABAPEN [Concomitant]
     Indication: COMPLEX PARTIAL SEIZURES
     Dosage: DAILY DOSE:2400MG
     Route: 048
     Dates: start: 20080508
  29. GABAPEN [Concomitant]
     Indication: PARTIAL SEIZURES WITH SECONDARY GENERALISATION
     Dosage: DAILY DOSE:2400MG
     Route: 048
     Dates: start: 20080508
  30. GABAPEN [Concomitant]
     Indication: SIMPLE PARTIAL SEIZURES
     Dosage: DAILY DOSE:2400MG
     Route: 048
     Dates: start: 20080508
  31. EXCERGEN [Concomitant]
     Indication: SIMPLE PARTIAL SEIZURES
     Dosage: DAILY DOSE: 200 MG
     Route: 048
     Dates: start: 20120125
  32. EXCERGEN [Concomitant]
     Indication: PARTIAL SEIZURES WITH SECONDARY GENERALISATION
     Dosage: DAILY DOSE: 200 MG
     Route: 048
     Dates: start: 20120125
  33. EXCERGEN [Concomitant]
     Indication: COMPLEX PARTIAL SEIZURES
     Dosage: DAILY DOSE: 200 MG
     Route: 048
     Dates: start: 20120125

REACTIONS (1)
  - Ileus [Recovering/Resolving]
